FAERS Safety Report 25037723 (Version 1)
Quarter: 2025Q1

REPORT INFORMATION
  Report Type: Spontaneous
  Country: US (occurrence: US)
  Receive Date: 20250304
  Receipt Date: 20250304
  Transmission Date: 20250409
  Serious: No
  Sender: ABBVIE
  Company Number: US-ABBVIE-6158746

PATIENT
  Age: 70 Year
  Sex: Female
  Weight: 50 kg

DRUGS (5)
  1. LATISSE [Suspect]
     Active Substance: BIMATOPROST
     Indication: Growth of eyelashes
     Dosage: FORM STRENGTH: 0.03 MILLIGRAM/MILLILITERS
     Route: 061
     Dates: start: 202501, end: 202501
  2. LATISSE [Suspect]
     Active Substance: BIMATOPROST
     Dosage: FORM STRENGTH: 0.03 MILLIGRAM/MILLILITERS
     Route: 061
     Dates: start: 2019, end: 2019
  3. LATISSE [Suspect]
     Active Substance: BIMATOPROST
     Dosage: FORM STRENGTH: 0.03 MILLIGRAM/MILLILITERS
     Route: 061
     Dates: start: 20250115, end: 20250210
  4. LIPITOR [Concomitant]
     Active Substance: ATORVASTATIN CALCIUM
     Indication: Blood cholesterol
     Route: 065
  5. IRBESARTAN [Concomitant]
     Active Substance: IRBESARTAN
     Indication: Hypertension
     Route: 065

REACTIONS (5)
  - Periorbital swelling [Recovered/Resolved]
  - Hypersensitivity [Recovered/Resolved]
  - Erythema [Recovered/Resolved]
  - Ocular discomfort [Recovered/Resolved]
  - Eye pruritus [Recovered/Resolved]

NARRATIVE: CASE EVENT DATE: 20250101
